FAERS Safety Report 14653734 (Version 2)
Quarter: 2018Q2

REPORT INFORMATION
  Report Type: Spontaneous
  Country: US (occurrence: US)
  Receive Date: 20180319
  Receipt Date: 20180418
  Transmission Date: 20180711
  Serious: No
  Sender: FDA-Public Use
  Company Number: US-PFIZER INC-2018108483

PATIENT
  Age: 75 Year
  Sex: Female
  Weight: 81 kg

DRUGS (1)
  1. IBRANCE [Suspect]
     Active Substance: PALBOCICLIB
     Indication: BREAST CANCER METASTATIC
     Dosage: 125 MG, CYCLIC, (DAY 1-21 Q28 DAYS)
     Route: 048
     Dates: start: 201603

REACTIONS (6)
  - Vitamin D decreased [Unknown]
  - Contusion [Unknown]
  - Blood calcium decreased [Unknown]
  - Back pain [Unknown]
  - Chest pain [Unknown]
  - Fatigue [Unknown]
